FAERS Safety Report 16566825 (Version 1)
Quarter: 2019Q3

REPORT INFORMATION
  Report Type: Spontaneous
  Country: PT (occurrence: PT)
  Receive Date: 20190712
  Receipt Date: 20190712
  Transmission Date: 20191004
  Serious: Yes (Other)
  Sender: FDA-Public Use
  Company Number: PT-MYLANLABS-2019M1064796

PATIENT
  Age: 76 Year
  Sex: Female

DRUGS (1)
  1. AMIODARONE [Suspect]
     Active Substance: AMIODARONE
     Indication: TACHYARRHYTHMIA
     Dosage: UNK

REACTIONS (2)
  - Cerebellar calcification [Recovering/Resolving]
  - Depressed level of consciousness [Recovering/Resolving]
